FAERS Safety Report 7079614-9 (Version None)
Quarter: 2010Q4

REPORT INFORMATION
  Report Type: 
  Country: None (occurrence: None)
  Receive Date: 20101102
  Receipt Date: 20101020
  Transmission Date: 20110411
  Serious: Yes (Other)
  Sender: FDA-Public Use
  Company Number: PHHY2010CH70701

PATIENT
  Age: 72 Year
  Sex: Female

DRUGS (1)
  1. DICLOFENAC SODIUM [Suspect]

REACTIONS (4)
  - LEUKOPENIA [None]
  - NEUTROPENIA [None]
  - SIALOADENITIS [None]
  - SYSTEMIC LUPUS ERYTHEMATOSUS [None]
